FAERS Safety Report 23743675 (Version 1)
Quarter: 2024Q2

REPORT INFORMATION
  Report Type: Spontaneous
  Country: US (occurrence: US)
  Receive Date: 20240415
  Receipt Date: 20240415
  Transmission Date: 20240716
  Serious: No
  Sender: FDA-Public Use
  Company Number: US-MYLANLABS-2024M1028811

PATIENT
  Sex: Female
  Weight: 48.08 kg

DRUGS (2)
  1. ESTRADIOL [Suspect]
     Active Substance: ESTRADIOL
     Indication: Bladder spasm
     Dosage: 1 GRAM (THREE TIMES A WEEK)
     Route: 067
     Dates: start: 20240319
  2. ESTRADIOL [Suspect]
     Active Substance: ESTRADIOL
     Indication: Urinary tract infection

REACTIONS (2)
  - Product use issue [Unknown]
  - Off label use [Unknown]
